FAERS Safety Report 9815639 (Version 2)
Quarter: 2016Q1

REPORT INFORMATION
  Report Type: Report from Study
  Country: US (occurrence: US)
  Receive Date: 20140114
  Receipt Date: 20160302
  Transmission Date: 20160526
  Serious: Yes (Hospitalization)
  Sender: FDA-Public Use
  Company Number: US-ROCHE-1329271

PATIENT
  Age: 47 Year
  Sex: Female

DRUGS (2)
  1. VISMODEGIB [Suspect]
     Active Substance: VISMODEGIB
     Indication: PANCREATIC CARCINOMA
     Dosage: CYCLE: 28 DAYS. LAST DOSE PRIOR TO EVENT: 11/FEB/2011
     Route: 048
     Dates: start: 20100903
  2. GEMCITABINE HYDROCHLORIDE. [Suspect]
     Active Substance: GEMCITABINE HYDROCHLORIDE
     Indication: PANCREATIC CARCINOMA
     Dosage: OVER 30 MINUTES ON DAY 1, 8, 15 STARTING WITH CYCLE 2 (DAY 29). LAST DOSE PRIOR TO THE SAE ON 21/JAN
     Route: 042
     Dates: start: 20100903

REACTIONS (5)
  - Pneumoperitoneum [Unknown]
  - Abdominal infection [Unknown]
  - Peritonitis [Unknown]
  - Large intestine perforation [Unknown]
  - Anaemia [Recovered/Resolved]

NARRATIVE: CASE EVENT DATE: 20110212
